FAERS Safety Report 8092551-6 (Version None)
Quarter: 2012Q1

REPORT INFORMATION
  Report Type: 
  Country: None (occurrence: None)
  Receive Date: 20120128
  Receipt Date: 20110826
  Transmission Date: 20120608
  Serious: Yes (Other)
  Sender: FDA-Public Use
  Company Number: US-ABBOTT-11P-163-0849857-00

PATIENT
  Sex: Female
  Weight: 46.762 kg

DRUGS (9)
  1. HUMIRA [Suspect]
     Indication: CROHN'S DISEASE
     Dates: start: 20100201, end: 20110701
  2. LOMOTIL [Concomitant]
     Indication: CROHN'S DISEASE
  3. LOPERAMIDE HCL [Concomitant]
     Indication: CROHN'S DISEASE
  4. TAVADONE [Concomitant]
     Indication: CROHN'S DISEASE
  5. DONATAL [Concomitant]
     Indication: CROHN'S DISEASE
  6. MERCAPTOPURINE [Concomitant]
     Indication: CROHN'S DISEASE
  7. INDERAL [Concomitant]
     Indication: MIGRAINE
  8. PROTONIX [Concomitant]
     Indication: GASTROOESOPHAGEAL REFLUX DISEASE
  9. TOPAMAX [Concomitant]
     Indication: MIGRAINE

REACTIONS (4)
  - BASAL CELL CARCINOMA [None]
  - SQUAMOUS CELL CARCINOMA [None]
  - LEUKAEMIA [None]
  - PSORIASIS [None]
